FAERS Safety Report 10362864 (Version 2)
Quarter: 2018Q4

REPORT INFORMATION
  Report Type: Spontaneous
  Country: US (occurrence: US)
  Receive Date: 20140805
  Receipt Date: 20181216
  Transmission Date: 20190204
  Serious: No
  Sender: FDA-Public Use
  Company Number: US-MALLINCKRODT-T201402687

PATIENT
  Age: 62 Year
  Sex: Male
  Weight: 92.97 kg

DRUGS (2)
  1. PAMELOR [Suspect]
     Active Substance: NORTRIPTYLINE HYDROCHLORIDE
     Indication: NEUROPATHY PERIPHERAL
     Dosage: 10 -30 MG, DAILY AT HS
     Route: 048
     Dates: start: 201406
  2. LOVASTATIN. [Concomitant]
     Active Substance: LOVASTATIN
     Indication: HYPERCHOLESTEROLAEMIA
     Dosage: 40 MG, DAILY
     Route: 048

REACTIONS (2)
  - Nightmare [Not Recovered/Not Resolved]
  - Product use in unapproved indication [Not Recovered/Not Resolved]

NARRATIVE: CASE EVENT DATE: 201406
